FAERS Safety Report 11419135 (Version 1)
Quarter: 2015Q3

REPORT INFORMATION
  Report Type: Spontaneous
  Country: US (occurrence: None)
  Receive Date: 20150824
  Receipt Date: 20150824
  Transmission Date: 20151125
  Serious: Yes (Other)
  Sender: FDA-Public Use
  Company Number: ADE15-071

PATIENT
  Age: 45 Year
  Sex: Female
  Weight: 52.16 kg

DRUGS (4)
  1. TRAZODONE [Concomitant]
     Active Substance: TRAZODONE HYDROCHLORIDE
  2. ARNICARE [Suspect]
     Active Substance: ARNICA MONTANA
     Indication: SWELLING
     Dosage: 1 DIME-SIZED AMT, TOPICAL
     Route: 061
     Dates: start: 20150728
  3. MULTIVITAMINS BY VITA MEDICA [Concomitant]
  4. BUPROPION. [Concomitant]
     Active Substance: BUPROPION

REACTIONS (7)
  - Application site erythema [None]
  - Hypoaesthesia [None]
  - Sensory loss [None]
  - Chemical injury [None]
  - Blister [None]
  - Skin exfoliation [None]
  - Burns second degree [None]

NARRATIVE: CASE EVENT DATE: 20150729
